FAERS Safety Report 14911708 (Version 1)
Quarter: 2018Q2

REPORT INFORMATION
  Report Type: Spontaneous
  Country: FR (occurrence: FR)
  Receive Date: 20180518
  Receipt Date: 20180518
  Transmission Date: 20180711
  Serious: Yes (Hospitalization)
  Sender: FDA-Public Use
  Company Number: FR-MERCK KGAA-2048033

PATIENT
  Age: 47 Year
  Sex: Female

DRUGS (1)
  1. NOVOTHYROX [Suspect]
     Active Substance: LEVOTHYROXINE SODIUM
     Indication: HYPOTHYROIDISM

REACTIONS (13)
  - Impatience [None]
  - Social avoidant behaviour [None]
  - Hypersensitivity [None]
  - Fatigue [Recovering/Resolving]
  - Asthenia [None]
  - Personal relationship issue [None]
  - Impaired work ability [None]
  - Headache [Recovered/Resolved]
  - Mood altered [None]
  - Irritability [None]
  - Myalgia [None]
  - Pain [None]
  - Red blood cell sedimentation rate increased [None]

NARRATIVE: CASE EVENT DATE: 20170823
